FAERS Safety Report 10171297 (Version 1)
Quarter: 2014Q2

REPORT INFORMATION
  Report Type: Spontaneous
  Country: US (occurrence: US)
  Receive Date: 20140514
  Receipt Date: 20140514
  Transmission Date: 20141212
  Serious: No
  Sender: FDA-Public Use
  Company Number: US-PFIZER INC-2014131891

PATIENT
  Age: 74 Year
  Sex: Female
  Weight: 66.21 kg

DRUGS (4)
  1. CELEBREX [Suspect]
     Dosage: 200 MG, 1X/DAY
     Route: 048
     Dates: start: 2013, end: 2014
  2. CELEBREX [Suspect]
     Dosage: 200 MG, 1X/DAY
     Dates: start: 2014, end: 201405
  3. LEXAPRO [Concomitant]
     Dosage: 5 MG, UNK
  4. PREMARIN [Concomitant]
     Dosage: 0.9 MG, UNK

REACTIONS (1)
  - Arthralgia [Unknown]
